FAERS Safety Report 9433419 (Version 2)
Quarter: 2014Q3

REPORT INFORMATION
  Report Type: Spontaneous
  Country: US (occurrence: US)
  Receive Date: 20130731
  Receipt Date: 20140724
  Transmission Date: 20150326
  Serious: Yes (Hospitalization, Other)
  Sender: FDA-Public Use
  Company Number: US-009507513-1307USA017161

PATIENT
  Weight: 99.77 kg

DRUGS (1)
  1. NUVARING [Suspect]
     Active Substance: ETHINYL ESTRADIOL\ETONOGESTREL
     Indication: CONTRACEPTION
     Dosage: UNK
     Route: 067
     Dates: start: 201109, end: 201206

REACTIONS (12)
  - Gastroenteritis Escherichia coli [Recovered/Resolved]
  - Intestinal adhesion lysis [Unknown]
  - Enteritis [Unknown]
  - Coagulopathy [Unknown]
  - Ileectomy [Recovering/Resolving]
  - Fistula [Unknown]
  - Knee operation [Unknown]
  - Appendicitis [Unknown]
  - Appendicectomy [Unknown]
  - Small intestinal obstruction [Unknown]
  - Mesenteric artery embolism [Unknown]
  - Crohn^s disease [Unknown]

NARRATIVE: CASE EVENT DATE: 201204
